FAERS Safety Report 10174522 (Version 1)
Quarter: 2014Q2

REPORT INFORMATION
  Report Type: Spontaneous
  Country: US (occurrence: US)
  Receive Date: 20140515
  Receipt Date: 20140515
  Transmission Date: 20141212
  Serious: Yes (Hospitalization)
  Sender: FDA-Public Use
  Company Number: US-BAYER-2014-070857

PATIENT
  Age: 31 Year
  Sex: Female
  Weight: 113.83 kg

DRUGS (10)
  1. YAZ [Suspect]
     Indication: CONTRACEPTION
  2. BEYAZ [Suspect]
  3. GIANVI [Suspect]
  4. TYLENOL [PARACETAMOL] [Concomitant]
     Indication: PAIN
     Dosage: 500 MG, TWO TABS EVERY 6 HOURS AS NEEDED
     Dates: start: 20120101
  5. HYDROCODONE W/ACETAMINOPHEN [Concomitant]
     Indication: PAIN
     Dosage: 7.5 MG-500 EVERY 6 HOURS AS NEEDED
     Dates: start: 20120101
  6. LORTAB [Concomitant]
     Dosage: ONE TABLET EVERY FOUR HOURS AS NEEDED
     Dates: start: 20120220
  7. ALBUTEROL [Concomitant]
     Dosage: TWO PUFFS EVERY FOUR HOURS AS NEEDED
     Dates: start: 20120220
  8. ZYRTEC [Concomitant]
     Indication: HYPERSENSITIVITY
     Dosage: 10 MG, DAILY
     Dates: start: 20120220
  9. FOLIC ACID [Concomitant]
     Indication: NUTRITIONAL SUPPLEMENTATION
     Dosage: 0.4 MG, DAILY
     Dates: start: 20120220
  10. MELOXICAM [Concomitant]
     Dosage: 1 TABLET AS NEEDED
     Dates: start: 20120220

REACTIONS (1)
  - Deep vein thrombosis [Recovered/Resolved]
